FAERS Safety Report 20710258 (Version 2)
Quarter: 2022Q2

REPORT INFORMATION
  Report Type: Report from Study
  Country: PL (occurrence: PL)
  Receive Date: 20220414
  Receipt Date: 20220422
  Transmission Date: 20220721
  Serious: Yes (Hospitalization, Other)
  Sender: FDA-Public Use
  Company Number: PL-CELGENE-POL-20210503619

PATIENT
  Age: 53 Year
  Sex: Female

DRUGS (10)
  1. OZANIMOD [Suspect]
     Active Substance: OZANIMOD
     Indication: Relapsing multiple sclerosis
     Route: 048
     Dates: start: 20190814
  2. ACARD [Concomitant]
     Indication: Prophylaxis
     Route: 048
     Dates: start: 20200915
  3. CYCLO 3 FORT [Concomitant]
     Active Substance: ASCORBIC ACID\HESPERIDIN METHYLCHALCONE\RUSCUS ACULEATUS ROOT
     Indication: Inflammation
     Dosage: 150+150+100 (MILLIGRAM)
     Route: 048
     Dates: start: 20190514
  4. KETOPROFEN [Concomitant]
     Active Substance: KETOPROFEN
     Indication: Intervertebral disc degeneration
     Dosage: FREQUENCY TEXT: AS NEEDED
     Route: 048
     Dates: start: 20160801
  5. FERROUS SULFATE ANHYDROUS [Concomitant]
     Active Substance: FERROUS SULFATE ANHYDROUS
     Indication: Anaemia
     Route: 048
     Dates: start: 20170912
  6. Heparizen [Concomitant]
     Indication: Inflammation
     Dosage: 2 DOSAGE FORMS
     Route: 061
     Dates: start: 20190514
  7. LEVOTHYROXINE SODIUM [Concomitant]
     Active Substance: LEVOTHYROXINE SODIUM
     Indication: Hypothyroidism
     Dosage: .05 MILLIGRAM
     Route: 048
  8. RAMIPRIL [Concomitant]
     Active Substance: RAMIPRIL
     Indication: Hypertension
     Route: 048
     Dates: start: 20200818
  9. POLVERTIC [Concomitant]
     Indication: Vertigo
     Dosage: 48 MILLIGRAM
     Route: 048
     Dates: start: 20160825
  10. YASMIN [Concomitant]
     Active Substance: DROSPIRENONE\ETHINYL ESTRADIOL
     Indication: Contraception
     Dosage: 1 (TABLET DOSING UNIT)
     Route: 048
     Dates: start: 20170622

REACTIONS (1)
  - Dermatofibrosarcoma protuberans [Recovered/Resolved]

NARRATIVE: CASE EVENT DATE: 20210218
